FAERS Safety Report 23799981 (Version 1)
Quarter: 2024Q2

REPORT INFORMATION
  Report Type: Spontaneous
  Country: US (occurrence: None)
  Receive Date: 20240429
  Receipt Date: 20240429
  Transmission Date: 20240716
  Serious: Yes (Hospitalization)
  Sender: FDA-Public Use
  Company Number: None

PATIENT
  Age: 34 Year
  Sex: Male
  Weight: 90 kg

DRUGS (1)
  1. HUMAN IMMUNOGLOBULIN G [Suspect]
     Active Substance: HUMAN IMMUNOGLOBULIN G
     Indication: Pemphigus
     Dosage: 80 GM ONCE IV
     Route: 042
     Dates: start: 20230209, end: 20230209

REACTIONS (4)
  - Headache [None]
  - Jaundice [None]
  - Vomiting [None]
  - Haemolytic anaemia [None]

NARRATIVE: CASE EVENT DATE: 20230214
